FAERS Safety Report 19073439 (Version 1)
Quarter: 2021Q1

REPORT INFORMATION
  Report Type: Other
  Country: FR (occurrence: FR)
  Receive Date: 20210330
  Receipt Date: 20210330
  Transmission Date: 20210420
  Serious: Yes (Other)
  Sender: FDA-Public Use
  Company Number: FR-ROCHE-2794176

PATIENT

DRUGS (6)
  1. IPILIMUMAB [Suspect]
     Active Substance: IPILIMUMAB
     Indication: NEOPLASM MALIGNANT
     Route: 065
  2. PEMBROLIZUMAB. [Suspect]
     Active Substance: PEMBROLIZUMAB
     Indication: NEOPLASM MALIGNANT
     Route: 065
  3. AVELUMAB [Suspect]
     Active Substance: AVELUMAB
     Indication: NEOPLASM MALIGNANT
     Route: 065
  4. ATEZOLIZUMAB. [Suspect]
     Active Substance: ATEZOLIZUMAB
     Indication: NEOPLASM MALIGNANT
     Route: 065
  5. NIVOLUMAB [Suspect]
     Active Substance: NIVOLUMAB
     Indication: NEOPLASM MALIGNANT
     Route: 065
  6. DURVALUMAB. [Suspect]
     Active Substance: DURVALUMAB
     Indication: NEOPLASM MALIGNANT
     Route: 065

REACTIONS (28)
  - Hyperthyroidism [Unknown]
  - Lichenoid keratosis [Unknown]
  - Myositis [Unknown]
  - Dermatitis [Unknown]
  - Cellulitis [Unknown]
  - Pulmonary embolism [Unknown]
  - Eye disorder [Unknown]
  - Cardiac disorder [Unknown]
  - Psoriasis [Unknown]
  - Hepatitis [Unknown]
  - Pneumonitis [Unknown]
  - Erythema multiforme [Unknown]
  - Colitis [Unknown]
  - Hypothyroidism [Unknown]
  - Adrenal insufficiency [Unknown]
  - Arthralgia [Unknown]
  - Nervous system disorder [Unknown]
  - Blood disorder [Unknown]
  - Rash [Unknown]
  - Renal disorder [Unknown]
  - Vasculitis [Unknown]
  - Pulmonary sarcoidosis [Unknown]
  - Gastritis [Unknown]
  - Hypophysitis [Unknown]
  - Arthritis [Unknown]
  - Diabetes mellitus [Unknown]
  - Pemphigoid [Unknown]
  - Systemic lupus erythematosus [Unknown]
